FAERS Safety Report 7948532-3 (Version None)
Quarter: 2011Q4

REPORT INFORMATION
  Report Type: 
  Country: None (occurrence: None)
  Receive Date: 20111128
  Receipt Date: 20111128
  Transmission Date: 20120403
  Serious: No
  Sender: FDA-Public Use
  Company Number: None

PATIENT
  Sex: Female
  Weight: 61.24 kg

DRUGS (2)
  1. HERCEPTIN [Suspect]
     Dosage: 252 MG
     Dates: end: 20111114
  2. TAXOL [Suspect]
     Dosage: 264 MG
     Dates: end: 20111114

REACTIONS (2)
  - PANCREATITIS ACUTE [None]
  - HEADACHE [None]
